FAERS Safety Report 22162471 (Version 1)
Quarter: 2023Q1

REPORT INFORMATION
  Report Type: Spontaneous
  Country: US (occurrence: US)
  Receive Date: 20230331
  Receipt Date: 20230331
  Transmission Date: 20230418
  Serious: Yes (Other)
  Sender: FDA-Public Use
  Company Number: US-BAYER-2023A038859

PATIENT
  Age: 84 Year
  Sex: Female

DRUGS (1)
  1. STIVARGA [Suspect]
     Active Substance: REGORAFENIB
     Dosage: UNK
     Dates: end: 202301

REACTIONS (4)
  - Herpes zoster [None]
  - Gastric disorder [None]
  - Diarrhoea [None]
  - Weight decreased [None]
